FAERS Safety Report 5814701-1 (Version None)
Quarter: 2008Q3

REPORT INFORMATION
  Report Type: 
  Country: None (occurrence: None)
  Receive Date: 20080718
  Receipt Date: 20080413
  Transmission Date: 20090109
  Serious: No
  Sender: FDA-Public Use
  Company Number: US-KINGPHARMUSA00001-K200800442

PATIENT

DRUGS (4)
  1. LEVOXYL [Suspect]
     Indication: AUTOIMMUNE THYROIDITIS
     Dosage: 75-100MCG, QD
     Route: 048
     Dates: start: 20010101, end: 20060101
  2. LEVOXYL [Suspect]
     Dosage: UNK, UNK
  3. LEVOXYL [Suspect]
     Dosage: UNK, UNK
  4. LEVOXYL [Suspect]
     Dosage: 50 MCG, QD
     Route: 048
     Dates: start: 20060101

REACTIONS (1)
  - COGNITIVE DISORDER [None]
